FAERS Safety Report 15018132 (Version 1)
Quarter: 2018Q2

REPORT INFORMATION
  Report Type: Spontaneous
  Country: CO (occurrence: CO)
  Receive Date: 20180615
  Receipt Date: 20180615
  Transmission Date: 20180711
  Serious: Yes (Other)
  Sender: FDA-Public Use
  Company Number: CO-BAYER-2018-109918

PATIENT
  Age: 58 Year
  Sex: Female

DRUGS (1)
  1. NEXAVAR [Suspect]
     Active Substance: SORAFENIB
     Indication: FOLLICULAR THYROID CANCER
     Dosage: 400 MG, BID
     Route: 048
     Dates: start: 201608, end: 2017

REACTIONS (4)
  - Nasal discomfort [Recovered/Resolved]
  - Nasal mucosal disorder [Recovered/Resolved]
  - Keratoacanthoma [Recovered/Resolved]
  - Rhinalgia [Recovered/Resolved]

NARRATIVE: CASE EVENT DATE: 201608
